FAERS Safety Report 6084722-5 (Version None)
Quarter: 2009Q1

REPORT INFORMATION
  Report Type: 
  Country: None (occurrence: None)
  Receive Date: 20090217
  Receipt Date: 20081002
  Transmission Date: 20090719
  Serious: Yes (Hospitalization)
  Sender: FDA-Public Use
  Company Number: 2008EU002114

PATIENT
  Age: 75 Year
  Sex: Female

DRUGS (6)
  1. SOLIFENACIN(SOLIFENACIN) TABLET, 5MG [Suspect]
     Indication: HYPERTONIC BLADDER
     Dosage: 5 MG, UID/QD, ORAL
     Route: 048
     Dates: start: 20080728, end: 20080801
  2. SOLIFENACIN(SOLIFENACIN) TABLET, 5MG [Suspect]
     Indication: HYPERTONIC BLADDER
     Dosage: 5 MG, UID/QD, ORAL
     Route: 048
     Dates: start: 20080805, end: 20080807
  3. ANTIPSYCHOTICS() [Suspect]
     Indication: PSYCHOTIC DISORDER
     Dosage: UID/QD,
  4. AKINETON [Concomitant]
  5. HALDOL SOLUTAB [Concomitant]
  6. ANTIHYPERTENSIVES [Concomitant]

REACTIONS (4)
  - DIZZINESS [None]
  - INCORRECT DRUG ADMINISTRATION DURATION [None]
  - ORTHOSTATIC HYPOTENSION [None]
  - POTENTIATING DRUG INTERACTION [None]
